FAERS Safety Report 21710606 (Version 2)
Quarter: 2022Q4

REPORT INFORMATION
  Report Type: Spontaneous
  Country: SI (occurrence: SI)
  Receive Date: 20221212
  Receipt Date: 20221217
  Transmission Date: 20230113
  Serious: Yes (Hospitalization, Other)
  Sender: FDA-Public Use
  Company Number: SI-MYLANLABS-2022M1133285

PATIENT
  Age: 46 Year
  Sex: Male

DRUGS (19)
  1. RISPERIDONE [Suspect]
     Active Substance: RISPERIDONE
     Indication: Product used for unknown indication
     Dosage: UNK, (3 - 2 - 3 MG)
     Route: 065
  2. RISPERIDONE [Suspect]
     Active Substance: RISPERIDONE
     Dosage: 4 MG
     Route: 065
  3. RISPERIDONE [Suspect]
     Active Substance: RISPERIDONE
     Dosage: 4 MG
     Route: 065
  4. RISPERIDONE [Suspect]
     Active Substance: RISPERIDONE
     Dosage: UNK, (0-1-1 MG)
     Route: 065
  5. CLOZAPINE [Suspect]
     Active Substance: CLOZAPINE
     Indication: Product used for unknown indication
     Dosage: 600 MILLIGRAM
     Route: 065
  6. CLOZAPINE [Suspect]
     Active Substance: CLOZAPINE
     Dosage: UNK (125-125-200 MG)
     Route: 065
  7. LORAZEPAM [Suspect]
     Active Substance: LORAZEPAM
     Indication: Product used for unknown indication
     Dosage: 3 MG
     Route: 065
  8. LORAZEPAM [Suspect]
     Active Substance: LORAZEPAM
     Dosage: UNK (2-1- 2 MG)
     Route: 065
  9. ZUCLOPENTHIXOL [Suspect]
     Active Substance: ZUCLOPENTHIXOL
     Indication: Product used for unknown indication
     Dosage: 200 MG
     Route: 030
  10. ZUCLOPENTHIXOL [Suspect]
     Active Substance: ZUCLOPENTHIXOL
     Dosage: 300 MG
     Route: 030
  11. ZUCLOPENTHIXOL [Suspect]
     Active Substance: ZUCLOPENTHIXOL
     Dosage: 200 MG
     Route: 030
  12. ZUCLOPENTHIXOL [Suspect]
     Active Substance: ZUCLOPENTHIXOL
     Dosage: 200 MG
     Route: 030
  13. AMISULPRIDE [Suspect]
     Active Substance: AMISULPRIDE
     Indication: Product used for unknown indication
     Dosage: 100 MG
     Route: 065
  14. AMISULPRIDE [Suspect]
     Active Substance: AMISULPRIDE
     Dosage: 800 MG
     Route: 065
  15. OLANZAPINE [Suspect]
     Active Substance: OLANZAPINE
     Indication: Product used for unknown indication
     Dosage: 20 MG
     Route: 048
  16. LAMOTRIGINE [Suspect]
     Active Substance: LAMOTRIGINE
     Indication: Product used for unknown indication
     Dosage: 100 MG
     Route: 048
  17. LAMOTRIGINE [Suspect]
     Active Substance: LAMOTRIGINE
     Dosage: 200 MG
     Route: 065
  18. HALOPERIDOL [Suspect]
     Active Substance: HALOPERIDOL
     Indication: Product used for unknown indication
     Dosage: 20 MG, QD, (10-10-0 MG)
     Route: 065
  19. DIAZEPAM [Suspect]
     Active Substance: DIAZEPAM
     Indication: Product used for unknown indication
     Dosage: 10 MG
     Route: 065

REACTIONS (2)
  - Schizophrenia [Unknown]
  - Myocarditis [Recovering/Resolving]
